FAERS Safety Report 9308470 (Version 1)
Quarter: 2013Q2

REPORT INFORMATION
  Report Type: Spontaneous
  Country: HU (occurrence: HU)
  Receive Date: 20130524
  Receipt Date: 20130524
  Transmission Date: 20140414
  Serious: Yes (Death, Other)
  Sender: FDA-Public Use
  Company Number: HU-PFIZER INC-2013159176

PATIENT
  Age: 73 Year
  Sex: Male

DRUGS (1)
  1. XALKORI [Suspect]
     Indication: ADENOSQUAMOUS CELL LUNG CANCER
     Dosage: 250 MG, 2X/DAY

REACTIONS (4)
  - Staphylococcal sepsis [Fatal]
  - Pneumonia [Unknown]
  - Pneumonitis [Unknown]
  - Off label use [Unknown]
